FAERS Safety Report 4530015-4 (Version None)
Quarter: 2004Q4

REPORT INFORMATION
  Report Type: 
  Country: None (occurrence: None)
  Receive Date: 20041214
  Receipt Date: 20041206
  Transmission Date: 20050328
  Serious: Yes (Death)
  Sender: FDA-Public Use
  Company Number: US-2004-036191

PATIENT
  Age: 35 Year
  Sex: Male

DRUGS (1)
  1. BETASERON [Suspect]
     Indication: MULTIPLE SCLEROSIS
     Dosage: 8 MIU, EVERY 2, SUBCUTANEOUS
     Route: 058
     Dates: start: 19940404, end: 20040612

REACTIONS (1)
  - DEATH [None]
